FAERS Safety Report 8490858-1 (Version None)
Quarter: 2012Q3

REPORT INFORMATION
  Report Type: 
  Country: None (occurrence: None)
  Receive Date: 20120706
  Receipt Date: 20120622
  Transmission Date: 20120928
  Serious: Yes (Death)
  Sender: FDA-Public Use
  Company Number: GB-RANBAXY-2012R1-57537

PATIENT
  Age: 40 Year
  Sex: Male

DRUGS (10)
  1. ADCAL-D3 [Concomitant]
     Indication: CROHN'S DISEASE
     Dosage: 1 DF, BID
     Route: 048
     Dates: start: 20110808
  2. VENTOLIN [Concomitant]
     Indication: PRODUCT USED FOR UNKNOWN INDICATION
     Route: 065
  3. ORAMORPH SR [Concomitant]
     Indication: PAIN
  4. HUMIRA [Concomitant]
     Indication: CROHN'S DISEASE
     Dosage: UNK
     Route: 030
     Dates: start: 20111005
  5. CLARITHROMYCIN [Suspect]
     Indication: LOWER RESPIRATORY TRACT INFECTION
     Dosage: 500 MG, BID
     Route: 048
     Dates: start: 20111028
  6. MULTI-VITAMIN [Concomitant]
     Indication: PRODUCT USED FOR UNKNOWN INDICATION
     Route: 065
  7. LANSOPRAZOLE [Concomitant]
     Indication: GASTRITIS
     Dosage: 30 MG, QD
     Route: 048
     Dates: start: 20111019
  8. ORAMORPH SR [Concomitant]
     Indication: CROHN'S DISEASE
     Dosage: 100 MG, QD
     Route: 048
  9. METHADONE HCL [Suspect]
     Indication: PAIN
     Dosage: 90 MG, QD
     Route: 048
     Dates: start: 20111025
  10. DIAZEPAM [Concomitant]
     Indication: ANXIETY
     Dosage: 2 MG, AS NECESSARY
     Route: 048
     Dates: start: 20111019

REACTIONS (1)
  - DRUG INTERACTION [None]
